FAERS Safety Report 9626889 (Version 2)
Quarter: 2013Q4

REPORT INFORMATION
  Report Type: Spontaneous
  Country: US (occurrence: US)
  Receive Date: 20131016
  Receipt Date: 20131016
  Transmission Date: 20140711
  Serious: No
  Sender: FDA-Public Use
  Company Number: US-ASTRAZENECA-2004UW08514

PATIENT
  Age: 87 Year
  Sex: Female
  Weight: 72.6 kg

DRUGS (20)
  1. CRESTOR [Suspect]
     Indication: BLOOD CHOLESTEROL INCREASED
     Route: 048
     Dates: start: 200403, end: 20040315
  2. NEXIUM [Suspect]
     Indication: HIATUS HERNIA
     Route: 048
  3. NEXIUM [Suspect]
     Indication: OESOPHAGEAL SPASM
     Route: 048
  4. NEXIUM [Suspect]
     Indication: GASTROPLASTY
     Route: 048
  5. NEXIUM [Suspect]
     Indication: HIATUS HERNIA
     Route: 048
     Dates: start: 201302
  6. NEXIUM [Suspect]
     Indication: OESOPHAGEAL SPASM
     Route: 048
     Dates: start: 201302
  7. NEXIUM [Suspect]
     Indication: GASTROPLASTY
     Route: 048
     Dates: start: 201302
  8. NEXIUM [Suspect]
     Indication: HIATUS HERNIA
     Dosage: DAILY
     Route: 048
     Dates: start: 2011, end: 201302
  9. NEXIUM [Suspect]
     Indication: OESOPHAGEAL SPASM
     Dosage: DAILY
     Route: 048
     Dates: start: 2011, end: 201302
  10. NEXIUM [Suspect]
     Indication: GASTROPLASTY
     Dosage: DAILY
     Route: 048
     Dates: start: 2011, end: 201302
  11. SONATA [Concomitant]
  12. LASIX [Concomitant]
  13. DOSTINEX [Concomitant]
     Indication: PITUITARY TUMOUR
  14. EVISTA [Concomitant]
  15. ATENOLOL [Concomitant]
     Indication: HYPERTENSION
  16. WELLBUTRIN [Concomitant]
  17. MAXIDE [Concomitant]
  18. SYNTHROID [Concomitant]
  19. DILACOR [Concomitant]
  20. ASA [Concomitant]
     Indication: PAIN

REACTIONS (4)
  - Hypoacusis [Not Recovered/Not Resolved]
  - Pain in extremity [Unknown]
  - Intentional drug misuse [Not Recovered/Not Resolved]
  - Drug ineffective [Not Recovered/Not Resolved]
